FAERS Safety Report 5457423-1 (Version None)
Quarter: 2007Q3

REPORT INFORMATION
  Report Type: 
  Country: None (occurrence: None)
  Receive Date: 20070918
  Receipt Date: 20070226
  Transmission Date: 20080115
  Serious: Yes (Hospitalization)
  Sender: FDA-Public Use
  Company Number: US-ASTRAZENECA-2007UW03668

PATIENT
  Age: 44 Year
  Sex: Female
  Weight: 90.7 kg

DRUGS (3)
  1. SEROQUEL [Suspect]
     Indication: SCHIZOAFFECTIVE DISORDER
     Route: 048
     Dates: start: 20060201
  2. RISPERDAL [Concomitant]
  3. VALIUM [Concomitant]

REACTIONS (3)
  - BACK DISORDER [None]
  - MUSCULOSKELETAL DISORDER [None]
  - PNEUMONIA [None]
